FAERS Safety Report 18041010 (Version 2)
Quarter: 2021Q1

REPORT INFORMATION
  Report Type: Spontaneous
  Country: US (occurrence: US)
  Receive Date: 20200718
  Receipt Date: 20210131
  Transmission Date: 20210419
  Serious: Yes (Hospitalization, Other)
  Sender: FDA-Public Use
  Company Number: US-PURDUE-USA-2020-0157915

PATIENT
  Sex: Male

DRUGS (18)
  1. OXYCONTIN [Suspect]
     Active Substance: OXYCODONE HYDROCHLORIDE
     Indication: PAIN
     Dosage: UNK, UNK
     Route: 048
     Dates: start: 20080823, end: 20090316
  2. OXYCONTIN [Suspect]
     Active Substance: OXYCODONE HYDROCHLORIDE
     Dosage: 2, 80 MG, Q6H
     Route: 048
     Dates: start: 20130405, end: 20130416
  3. OXYCODONE HCL TABLETS (RHODES 91?490) [Suspect]
     Active Substance: OXYCODONE HYDROCHLORIDE
     Dosage: 5 MG, UNK
     Route: 048
     Dates: start: 20080414, end: 20090126
  4. OXYCODONE HCL TABLETS (RHODES 91?490) [Suspect]
     Active Substance: OXYCODONE HYDROCHLORIDE
     Dosage: 3,15 MG, Q4H PRN
     Route: 048
     Dates: start: 20110523, end: 20120312
  5. OXYCONTIN [Suspect]
     Active Substance: OXYCODONE HYDROCHLORIDE
     Dosage: 13, 80 MG, DAILY
     Route: 048
     Dates: start: 20170723, end: 20190218
  6. OXYCODONE HCL TABLETS (RHODES 91?490) [Suspect]
     Active Substance: OXYCODONE HYDROCHLORIDE
     Indication: PAIN
     Dosage: 20 MG, UNK
     Route: 048
     Dates: start: 20080301, end: 20080324
  7. OXYCODONE HCL TABLETS (RHODES 91?490) [Suspect]
     Active Substance: OXYCODONE HYDROCHLORIDE
     Dosage: 2, 15MG  TABLET, Q6H PRN
     Route: 048
     Dates: start: 20090812, end: 20091010
  8. OXYCONTIN [Suspect]
     Active Substance: OXYCODONE HYDROCHLORIDE
     Dosage: 6, 80 MG, BID
     Route: 048
     Dates: start: 20101111, end: 20150304
  9. OXYCODONE HCL TABLETS (RHODES 91?490) [Suspect]
     Active Substance: OXYCODONE HYDROCHLORIDE
     Dosage: 3,30 MG, Q4H PRN
     Route: 048
     Dates: start: 20141031, end: 20150302
  10. OXYCONTIN [Suspect]
     Active Substance: OXYCODONE HYDROCHLORIDE
     Dosage: 5, 80 MG, BID
     Route: 048
     Dates: start: 20090422, end: 20120422
  11. OXYCONTIN [Suspect]
     Active Substance: OXYCODONE HYDROCHLORIDE
     Dosage: 4,80 TABLET, TID
     Route: 048
     Dates: start: 20140614, end: 20140717
  12. OXYCONTIN [Suspect]
     Active Substance: OXYCODONE HYDROCHLORIDE
     Dosage: 7, 80 MG, BID
     Route: 048
     Dates: start: 20150331, end: 20170625
  13. OXYCODONE HCL TABLETS (RHODES 91?490) [Suspect]
     Active Substance: OXYCODONE HYDROCHLORIDE
     Dosage: 5, 80 MG TABLET, BID
     Route: 048
     Dates: start: 20080414, end: 20100201
  14. OXYCODONE HCL TABLETS (RHODES 91?490) [Suspect]
     Active Substance: OXYCODONE HYDROCHLORIDE
     Dosage: 15 TABLET, Q4H PRN
     Route: 048
     Dates: start: 20091010, end: 20110514
  15. OXYCODONE HCL TABLETS (RHODES 91?490) [Suspect]
     Active Substance: OXYCODONE HYDROCHLORIDE
     Dosage: 2, 30 MG, Q6H PRN
     Route: 048
     Dates: start: 20121214, end: 20140203
  16. OXYCODONE HCL TABLETS (RHODES 91?490) [Suspect]
     Active Substance: OXYCODONE HYDROCHLORIDE
     Dosage: 4, 30 MG, Q4H
     Route: 048
     Dates: start: 20170307, end: 20190303
  17. OXYCODONE HCL TABLETS (RHODES 91?490) [Suspect]
     Active Substance: OXYCODONE HYDROCHLORIDE
     Dosage: 2,15 MG, Q4H PRN
     Route: 048
     Dates: start: 20091023, end: 20120119
  18. OXYCODONE HCL TABLETS (RHODES 91?490) [Suspect]
     Active Substance: OXYCODONE HYDROCHLORIDE
     Dosage: 2, 30 MG, Q4H PRN
     Route: 048
     Dates: start: 20120316, end: 20141114

REACTIONS (33)
  - Prostatomegaly [Unknown]
  - Testicular atrophy [Unknown]
  - Accidental overdose [Unknown]
  - Acute kidney injury [Unknown]
  - Anxiety disorder [Unknown]
  - Hyperaesthesia [Unknown]
  - Acute respiratory failure [Unknown]
  - Hyperkalaemia [Unknown]
  - Drug dependence [Unknown]
  - Hallucinations, mixed [Unknown]
  - Memory impairment [Unknown]
  - Sleep apnoea syndrome [Unknown]
  - Chronic kidney disease [Unknown]
  - Coma scale [Recovered/Resolved]
  - Rhabdomyolysis [Unknown]
  - Pneumonia pseudomonal [Unknown]
  - Acidosis [Unknown]
  - Learning disability [Unknown]
  - Intestinal obstruction [Unknown]
  - Suicide attempt [Unknown]
  - Lyme disease [Unknown]
  - Pulmonary oedema [Unknown]
  - Psychotic disorder [Unknown]
  - Urinary tract injury [Unknown]
  - Tooth loss [Unknown]
  - Essential hypertension [Unknown]
  - Respiratory acidosis [Unknown]
  - Acute myocardial infarction [Unknown]
  - Hypoxia [Unknown]
  - Chronic obstructive pulmonary disease [Unknown]
  - Pain [Unknown]
  - Cardiac disorder [Unknown]
  - Personality disorder [Unknown]
